FAERS Safety Report 8266126-X (Version None)
Quarter: 2012Q2

REPORT INFORMATION
  Report Type: 
  Country: None (occurrence: None)
  Receive Date: 20120406
  Receipt Date: 20120330
  Transmission Date: 20120825
  Serious: Yes (Death)
  Sender: FDA-Public Use
  Company Number: US-ROXANE LABORATORIES, INC.-2012-RO-00950RO

PATIENT

DRUGS (10)
  1. FENTANYL CITRATE [Suspect]
  2. ETHANOL [Suspect]
  3. METHADONE HCL [Suspect]
  4. OXYCODONE AND ACETAMINOPHEN [Suspect]
  5. OLANZAPINE [Suspect]
  6. BUPROPION HCL [Suspect]
  7. CLONAZEPAM [Suspect]
  8. PAROXETINE [Suspect]
  9. HYDROCODONE BITARTRATE [Suspect]
  10. HYDROCODONE BITARTRATE AND ACETAMINOPHEN [Suspect]

REACTIONS (1)
  - TOXICITY TO VARIOUS AGENTS [None]
